APPROVED DRUG PRODUCT: REYATAZ
Active Ingredient: ATAZANAVIR SULFATE
Strength: EQ 50MG BASE/PACKET
Dosage Form/Route: POWDER;ORAL
Application: N206352 | Product #001
Applicant: BRISTOL MYERS SQUIBB CO
Approved: Jun 2, 2014 | RLD: Yes | RS: Yes | Type: RX